FAERS Safety Report 8047130-3 (Version None)
Quarter: 2012Q1

REPORT INFORMATION
  Report Type: 
  Country: None (occurrence: None)
  Receive Date: 20120116
  Receipt Date: 20120105
  Transmission Date: 20120608
  Serious: Yes (Hospitalization)
  Sender: FDA-Public Use
  Company Number: MY-BRISTOL-MYERS SQUIBB COMPANY-16349391

PATIENT
  Age: 41 Year
  Sex: Male

DRUGS (2)
  1. AMLODIPINE [Concomitant]
     Dates: start: 20111213
  2. ABILIFY [Suspect]
     Indication: SCHIZOPHRENIA
     Dosage: INCREASED TO 24MG/DAY ON 21DEC11
     Route: 048
     Dates: start: 20110101, end: 20120105

REACTIONS (1)
  - SCHIZOPHRENIA [None]
